FAERS Safety Report 21839996 (Version 1)
Quarter: 2023Q1

REPORT INFORMATION
  Report Type: Spontaneous
  Country: IT (occurrence: None)
  Receive Date: 20230110
  Receipt Date: 20230110
  Transmission Date: 20230418
  Serious: Yes (Other)
  Sender: FDA-Public Use
  Company Number: IT-ROCHE-3258392

PATIENT
  Age: 17 Year
  Sex: Female

DRUGS (2)
  1. RIVOTRIL [Suspect]
     Active Substance: CLONAZEPAM
     Indication: Drug abuse
     Dosage: 50 DROPS, ABUSO
     Route: 048
     Dates: start: 20221121, end: 20221121
  2. EN [Suspect]
     Active Substance: DELORAZEPAM
     Indication: Drug abuse
     Route: 048
     Dates: start: 20221121, end: 20221121

REACTIONS (2)
  - Confusional state [Recovering/Resolving]
  - Poisoning [Recovering/Resolving]

NARRATIVE: CASE EVENT DATE: 20221121
